FAERS Safety Report 8831712 (Version 2)
Quarter: 2014Q3

REPORT INFORMATION
  Report Type: Spontaneous
  Country: US (occurrence: US)
  Receive Date: 20121009
  Receipt Date: 20140812
  Transmission Date: 20150326
  Serious: Yes (Hospitalization)
  Sender: FDA-Public Use
  Company Number: US-009507513-2009SP040687

PATIENT
  Sex: Female
  Weight: 72.58 kg

DRUGS (1)
  1. NUVARING [Suspect]
     Active Substance: ETHINYL ESTRADIOL\ETONOGESTREL
     Indication: CONTRACEPTION
     Route: 067
     Dates: start: 20071010, end: 200711

REACTIONS (13)
  - Pruritus [Unknown]
  - Calculus ureteric [Unknown]
  - Pelvic pain [Unknown]
  - Superior sagittal sinus thrombosis [Recovered/Resolved]
  - Abdominal pain [Unknown]
  - Pelvic inflammatory disease [Unknown]
  - Nausea [Unknown]
  - Cellulitis [Recovering/Resolving]
  - Haematuria [Recovering/Resolving]
  - Headache [Unknown]
  - Staphylococcal infection [Unknown]
  - Vomiting [Unknown]
  - Appendicitis [Unknown]

NARRATIVE: CASE EVENT DATE: 20071212
